FAERS Safety Report 25556585 (Version 1)
Quarter: 2025Q3

REPORT INFORMATION
  Report Type: Spontaneous
  Country: US (occurrence: US)
  Receive Date: 20250715
  Receipt Date: 20250715
  Transmission Date: 20251020
  Serious: No
  Sender: NOVO NORDISK
  Company Number: US-NOVOPROD-1279120

PATIENT
  Sex: Female

DRUGS (1)
  1. OZEMPIC [Suspect]
     Active Substance: SEMAGLUTIDE
     Indication: Glucose tolerance impaired
     Route: 058
     Dates: start: 20240731

REACTIONS (6)
  - Somnolence [Unknown]
  - Walking aid user [Unknown]
  - Dry skin [Unknown]
  - Fatigue [Unknown]
  - Abdominal distension [Unknown]
  - Product use in unapproved indication [Not Recovered/Not Resolved]
